FAERS Safety Report 7789319-4 (Version None)
Quarter: 2011Q3

REPORT INFORMATION
  Report Type: 
  Country: None (occurrence: None)
  Receive Date: 20110930
  Receipt Date: 20110923
  Transmission Date: 20111222
  Serious: Yes (Hospitalization)
  Sender: FDA-Public Use
  Company Number: KR-GLAXOSMITHKLINE-A0945874A

PATIENT
  Sex: Female
  Weight: 40.5 kg

DRUGS (1)
  1. LAPATINIB [Suspect]
     Indication: NEOPLASM
     Dosage: 1500MG PER DAY
     Route: 048
     Dates: start: 20090806

REACTIONS (1)
  - INFLUENZA LIKE ILLNESS [None]
